FAERS Safety Report 10570576 (Version 1)
Quarter: 2014Q4

REPORT INFORMATION
  Report Type: Spontaneous
  Country: US (occurrence: US)
  Receive Date: 20141107
  Receipt Date: 20141107
  Transmission Date: 20150529
  Serious: No
  Sender: FDA-Public Use
  Company Number: US-ELI_LILLY_AND_COMPANY-US201411000431

PATIENT
  Sex: Female

DRUGS (3)
  1. HUMALOG [Suspect]
     Active Substance: INSULIN LISPRO
     Indication: DIABETES MELLITUS
     Route: 065
  2. LANTUS [Concomitant]
     Active Substance: INSULIN GLARGINE
  3. HUMALOG [Suspect]
     Active Substance: INSULIN LISPRO
     Indication: DIABETES MELLITUS
     Dosage: 35 U, QD
     Route: 065

REACTIONS (7)
  - Malaise [Unknown]
  - Irritability [Unknown]
  - Visual acuity reduced [Unknown]
  - Sudden onset of sleep [Unknown]
  - Blood glucose increased [Unknown]
  - Asthenia [Unknown]
  - Drug dose omission [Unknown]
